FAERS Safety Report 6832418-1 (Version None)
Quarter: 2010Q3

REPORT INFORMATION
  Report Type: 
  Country: None (occurrence: None)
  Receive Date: 20100712
  Receipt Date: 20070310
  Transmission Date: 20110219
  Serious: No
  Sender: FDA-Public Use
  Company Number: US-PFIZER INC-2007020253

PATIENT
  Sex: Male
  Weight: 86.18 kg

DRUGS (3)
  1. CHANTIX [Suspect]
     Indication: SMOKING CESSATION THERAPY
     Dates: start: 20070201
  2. EFFEXOR [Concomitant]
     Indication: BLOOD TESTOSTERONE ABNORMAL
  3. VITAMINS [Concomitant]

REACTIONS (5)
  - BEDRIDDEN [None]
  - DIZZINESS [None]
  - DRY MOUTH [None]
  - IMPAIRED WORK ABILITY [None]
  - NAUSEA [None]
